FAERS Safety Report 22094001 (Version 1)
Quarter: 2023Q1

REPORT INFORMATION
  Report Type: Spontaneous
  Country: US (occurrence: US)
  Receive Date: 20230314
  Receipt Date: 20230314
  Transmission Date: 20230418
  Serious: No
  Sender: FDA-Public Use
  Company Number: US-Calliditas-2023CAL00236

PATIENT
  Age: 63 Year
  Sex: Male

DRUGS (1)
  1. TARPEYO [Suspect]
     Active Substance: BUDESONIDE
     Indication: IgA nephropathy
     Dosage: 16MG (4 CAPSULES) DAILY
     Route: 048
     Dates: start: 20230218

REACTIONS (5)
  - Dizziness [Unknown]
  - Dizziness [Unknown]
  - Asthenia [Unknown]
  - Fatigue [Unknown]
  - Blood sodium decreased [Unknown]
